FAERS Safety Report 5023683-4 (Version None)
Quarter: 2006Q2

REPORT INFORMATION
  Report Type: 
  Country: None (occurrence: None)
  Receive Date: 20060612
  Receipt Date: 20060606
  Transmission Date: 20061013
  Serious: Yes (Hospitalization)
  Sender: FDA-Public Use
  Company Number: US-JNJFOC-20060601883

PATIENT
  Sex: Male
  Weight: 50.8 kg

DRUGS (8)
  1. DURAGESIC-100 [Suspect]
     Indication: PAIN
     Route: 062
  2. TEGRETOL [Concomitant]
     Indication: CONVULSION
     Route: 048
  3. PERCOCET [Concomitant]
     Route: 048
  4. PERCOCET [Concomitant]
     Indication: PAIN
     Route: 048
  5. REMERON [Concomitant]
     Indication: SLEEP DISORDER
     Route: 048
  6. ALBUTEROL [Concomitant]
     Indication: RESPIRATORY DISORDER
     Route: 055
  7. ADVAIR DISKUS 100/50 [Concomitant]
     Route: 055
  8. ADVAIR DISKUS 100/50 [Concomitant]
     Indication: RESPIRATORY DISORDER
     Route: 055

REACTIONS (2)
  - ASTHENIA [None]
  - DEHYDRATION [None]
